FAERS Safety Report 6438195-0 (Version None)
Quarter: 2009Q4

REPORT INFORMATION
  Report Type: 
  Country: None (occurrence: None)
  Receive Date: 20091112
  Receipt Date: 20091109
  Transmission Date: 20100525
  Serious: Yes (Disabling)
  Sender: FDA-Public Use
  Company Number: US-B.I. PHARMACEUTICALS,INC./RIDGEFIELD-2009-BP-13054BP

PATIENT
  Sex: Female

DRUGS (3)
  1. SPIRIVA [Suspect]
     Indication: EMPHYSEMA
     Dosage: 18 MCG
     Route: 055
     Dates: start: 20060101, end: 20080101
  2. SPIRIVA [Suspect]
     Indication: BRONCHITIS CHRONIC
  3. ALBUTEROL [Concomitant]
     Indication: EMPHYSEMA

REACTIONS (2)
  - BLINDNESS [None]
  - DEPRESSION [None]
